FAERS Safety Report 7931537-6 (Version None)
Quarter: 2011Q4

REPORT INFORMATION
  Report Type: 
  Country: None (occurrence: None)
  Receive Date: 20111121
  Receipt Date: 20111121
  Transmission Date: 20120403
  Serious: Yes (Life-Threatening)
  Sender: FDA-Public Use
  Company Number: None

PATIENT
  Age: 11 Year
  Sex: Female
  Weight: 52.163 kg

DRUGS (1)
  1. SINGULAIR [Suspect]
     Indication: ASTHMA
     Dosage: 5 MG
     Route: 048
     Dates: start: 20111011, end: 20111103

REACTIONS (6)
  - NIGHTMARE [None]
  - DEPRESSION [None]
  - SUICIDAL IDEATION [None]
  - HALLUCINATION [None]
  - FATIGUE [None]
  - ABNORMAL BEHAVIOUR [None]
